FAERS Safety Report 8457719-5 (Version None)
Quarter: 2012Q2

REPORT INFORMATION
  Report Type: 
  Country: None (occurrence: None)
  Receive Date: 20120618
  Receipt Date: 20120618
  Transmission Date: 20120825
  Serious: Yes (Other)
  Sender: FDA-Public Use
  Company Number: None

PATIENT
  Age: 40 Year
  Sex: Female
  Weight: 75 kg

DRUGS (1)
  1. MIRENA [Suspect]
     Indication: CONTRACEPTION
     Dates: start: 20120310, end: 20120604

REACTIONS (13)
  - ANHEDONIA [None]
  - BRADYPHRENIA [None]
  - HYPERSOMNIA [None]
  - EMOTIONAL DISORDER [None]
  - IRRITABILITY [None]
  - MALAISE [None]
  - FEELING ABNORMAL [None]
  - DEPRESSION [None]
  - FATIGUE [None]
  - JUDGEMENT IMPAIRED [None]
  - LIBIDO DECREASED [None]
  - LISTLESS [None]
  - SUICIDAL IDEATION [None]
